FAERS Safety Report 5615319-6 (Version None)
Quarter: 2008Q1

REPORT INFORMATION
  Report Type: 
  Country: None (occurrence: None)
  Receive Date: 20080206
  Receipt Date: 20080131
  Transmission Date: 20080703
  Serious: Yes (Other)
  Sender: FDA-Public Use
  Company Number: B0505839A

PATIENT
  Age: 44 Year
  Sex: Male

DRUGS (3)
  1. PAXIL [Suspect]
     Indication: DRUG USE FOR UNKNOWN INDICATION
     Dosage: 20MG PER DAY
     Route: 048
     Dates: start: 20080121, end: 20080122
  2. FLUVOXAMINE MALEATE [Concomitant]
     Dosage: 50MG THREE TIMES PER DAY
     Route: 048
  3. LEXOTAN [Concomitant]
     Dosage: 10MG THREE TIMES PER DAY
     Route: 048

REACTIONS (3)
  - DELIRIUM [None]
  - FEELING ABNORMAL [None]
  - MEMORY IMPAIRMENT [None]
